FAERS Safety Report 22182581 (Version 4)
Quarter: 2025Q4

REPORT INFORMATION
  Report Type: Spontaneous
  Country: EU (occurrence: EU)
  Receive Date: 20230406
  Receipt Date: 20251112
  Transmission Date: 20260117
  Serious: Yes (Life-Threatening, Hospitalization, Other)
  Sender: SANOFI AVENTIS
  Company Number: EU-SA-2023SA106481

PATIENT
  Age: 76 Year
  Sex: Male
  Weight: 80 kg

DRUGS (13)
  1. AMIODARONE HYDROCHLORIDE [Interacting]
     Active Substance: AMIODARONE HYDROCHLORIDE
     Indication: Cardiac failure chronic
     Dosage: 200 MG, QD
  2. GLIMEPIRIDE [Interacting]
     Active Substance: GLIMEPIRIDE
     Indication: Type 2 diabetes mellitus
     Dosage: 6 MG, QD
  3. PREGABALIN [Interacting]
     Active Substance: PREGABALIN
     Indication: Diabetic neuropathy
     Dosage: 75 MG, QD
  4. PREGABALIN [Interacting]
     Active Substance: PREGABALIN
     Dosage: 150 MG, QD
  5. PREGABALIN [Interacting]
     Active Substance: PREGABALIN
     Dosage: 225 MG, QD
  6. PREGABALIN [Interacting]
     Active Substance: PREGABALIN
     Dosage: 75 MG, QD
  7. METOPROLOL [Concomitant]
     Active Substance: METOPROLOL
     Indication: Type 2 diabetes mellitus
     Dosage: 150 MG, QD
  8. DABIGATRAN [Concomitant]
     Active Substance: DABIGATRAN
     Indication: Cardiac failure chronic
     Dosage: 300 MG, QD
  9. EPLERENONE [Concomitant]
     Active Substance: EPLERENONE
     Indication: Cardiac failure chronic
     Dosage: 50 MG, QD
  10. FUROSEMIDE [Concomitant]
     Active Substance: FUROSEMIDE
     Indication: Cardiac failure chronic
     Dosage: 125 MG, QD
  11. ATORVASTATIN [Concomitant]
     Active Substance: ATORVASTATIN
     Indication: Cardiac failure chronic
     Dosage: 80 MG, QD
  12. INSULIN GLARGINE [Concomitant]
     Active Substance: INSULIN GLARGINE
     Indication: Type 2 diabetes mellitus
     Dosage: 16 IU, QD
  13. VITAMINS NOS [Concomitant]
     Active Substance: VITAMINS
     Indication: Diabetic neuropathy
     Dosage: UNK

REACTIONS (4)
  - Hypotension [Recovering/Resolving]
  - Drug interaction [Recovering/Resolving]
  - Hypoglycaemia [Recovered/Resolved]
  - Hyperthyroidism [Recovering/Resolving]
